FAERS Safety Report 6761238-1 (Version None)
Quarter: 2010Q2

REPORT INFORMATION
  Report Type: 
  Country: None (occurrence: None)
  Receive Date: 20100608
  Receipt Date: 20100528
  Transmission Date: 20101027
  Serious: Yes (Other)
  Sender: FDA-Public Use
  Company Number: PHHY2010MX31604

PATIENT
  Sex: Female

DRUGS (9)
  1. GALVUS [Suspect]
     Indication: HYPERTENSION
     Dosage: 50 MG, BID
     Route: 048
     Dates: start: 20050514
  2. EXFORGE [Suspect]
     Indication: HYPERTENSION
     Dosage: 1 DF, QD
     Route: 048
     Dates: start: 20060514
  3. DIOVAN HCT [Suspect]
     Indication: HYPERTENSION
     Dosage: 320/25 MG, QD
     Route: 048
     Dates: start: 20060101
  4. DIOVAN HCT [Suspect]
     Dosage: 1 TABLET (160/10 MG)
     Route: 048
     Dates: start: 20060514
  5. DIOVAN HCT [Suspect]
     Dosage: UNK
     Dates: start: 20060514
  6. TENORMIN [Concomitant]
     Dosage: 1 TABLET  (50 MG) DAILY
     Dates: start: 20060101
  7. ANGIOTROFIN (DILTIAZEM) [Concomitant]
     Dosage: 1 TABLET (150 MG)
  8. BI-EUGLUCON [Concomitant]
     Dosage: 1 TABLET (50/500) MG
  9. LEVOTHYROXINE SODIUM [Concomitant]
     Dosage: 25 MG, 1 DF, QD
     Dates: start: 20090101

REACTIONS (9)
  - CATARACT NUCLEAR [None]
  - FOREIGN BODY SENSATION IN EYES [None]
  - GLAUCOMA [None]
  - KERATOCONJUNCTIVITIS SICCA [None]
  - LACRIMATION INCREASED [None]
  - MACULAR DEGENERATION [None]
  - PRURITUS [None]
  - SCAB [None]
  - VISUAL ACUITY REDUCED [None]
